FAERS Safety Report 6108818-4 (Version None)
Quarter: 2009Q1

REPORT INFORMATION
  Report Type: 
  Country: None (occurrence: None)
  Receive Date: 20090310
  Receipt Date: 20090305
  Transmission Date: 20090719
  Serious: Yes (Death)
  Sender: FDA-Public Use
  Company Number: JP-BRISTOL-MYERS SQUIBB COMPANY-14531495

PATIENT
  Age: 40 Year
  Sex: Male

DRUGS (3)
  1. VEPESID [Suspect]
     Indication: TESTIS CANCER
     Dosage: CYCLE 1 ON 17NOV08: 120MG/DAY X5 CYCLE 2 FROM UNK-12DEC08: 85MG/DAY X5
     Dates: start: 20081117, end: 20081223
  2. RANDA [Suspect]
     Indication: TESTIS CANCER
     Dosage: CYCLE 1 ON 17NOV08: 25MG/DAY X5 CYCLE 2 FROM UNK-12DEC08: 17MG/DAY X5
     Dates: start: 20081117, end: 20081212
  3. BLEO [Suspect]
     Indication: TESTIS CANCER
     Dosage: CYCLE 1 ON 18NOV08: 12MG/DAY X2 CYCLE 2 ON UNK-23DEC08: 8.5MG/DAY X2 TOTAL DOSE: 49.5MG
     Dates: start: 20081118, end: 20081223

REACTIONS (1)
  - INTERSTITIAL LUNG DISEASE [None]
